FAERS Safety Report 5116657-6 (Version None)
Quarter: 2006Q3

REPORT INFORMATION
  Report Type: 
  Country: None (occurrence: None)
  Receive Date: 20060928
  Receipt Date: 20060811
  Transmission Date: 20061208
  Serious: Yes (Hospitalization)
  Sender: FDA-Public Use
  Company Number: FR-GLAXOSMITHKLINE-B0434217A

PATIENT
  Age: 71 Year
  Sex: Female

DRUGS (10)
  1. DEROXAT [Suspect]
     Dosage: 20MG THREE TIMES PER DAY
     Route: 048
     Dates: start: 20060718, end: 20060807
  2. MONOTILDIEM [Concomitant]
     Dosage: 300MG PER DAY
     Route: 065
  3. VASTAREL [Concomitant]
     Dosage: 35MG TWICE PER DAY
     Route: 065
  4. ASPIRIN [Concomitant]
     Dosage: 75MG PER DAY
     Route: 065
  5. XALATAN [Concomitant]
     Dosage: 1DROP PER DAY
     Route: 047
  6. ARTELAC [Concomitant]
     Dosage: 1DROP FOUR TIMES PER DAY
     Route: 047
  7. CRESTOR [Concomitant]
     Dosage: 10MG PER DAY
     Route: 065
  8. XANAX [Concomitant]
     Dosage: .25MG TWICE PER DAY
     Route: 065
     Dates: start: 20060517
  9. SERESTA 10 MG [Concomitant]
     Dosage: 10MG AS REQUIRED
     Route: 048
     Dates: start: 20060517
  10. STABLON [Concomitant]
     Dosage: 2UNIT PER DAY
     Route: 065
     Dates: start: 20060517, end: 20060718

REACTIONS (11)
  - ALANINE AMINOTRANSFERASE INCREASED [None]
  - ASPARTATE AMINOTRANSFERASE INCREASED [None]
  - CHOLESTASIS [None]
  - LYMPHADENOPATHY [None]
  - NIKOLSKY'S SIGN [None]
  - PIGMENTATION DISORDER [None]
  - PYREXIA [None]
  - RASH ERYTHEMATOUS [None]
  - SKIN DISORDER [None]
  - SKIN HYPERPIGMENTATION [None]
  - TOXIC EPIDERMAL NECROLYSIS [None]
